FAERS Safety Report 7731296-6 (Version None)
Quarter: 2011Q3

REPORT INFORMATION
  Report Type: 
  Country: None (occurrence: None)
  Receive Date: 20110906
  Receipt Date: 20110826
  Transmission Date: 20111222
  Serious: Yes (Other)
  Sender: FDA-Public Use
  Company Number: US-ASTRAZENECA-2011SE51760

PATIENT
  Age: 20 Year
  Sex: Female

DRUGS (1)
  1. TOPROL-XL [Suspect]
     Route: 048

REACTIONS (4)
  - CONVULSION [None]
  - TIBIA FRACTURE [None]
  - LIMB DISCOMFORT [None]
  - ROAD TRAFFIC ACCIDENT [None]
